FAERS Safety Report 4675675-2 (Version None)
Quarter: 2005Q2

REPORT INFORMATION
  Report Type: 
  Country: None (occurrence: None)
  Receive Date: 20050525
  Receipt Date: 20050509
  Transmission Date: 20051028
  Serious: Yes (Other)
  Sender: FDA-Public Use
  Company Number: L05-USA-01643-01

PATIENT
  Age: 56 Year
  Sex: Male

DRUGS (2)
  1. TIAZAC [Suspect]
     Indication: MYOCARDIAL ISCHAEMIA
     Dosage: 90 MG QD
  2. TIAZAC [Suspect]
     Indication: MYOCARDIAL ISCHAEMIA

REACTIONS (7)
  - ANHIDROSIS [None]
  - CONSTIPATION [None]
  - DRY MOUTH [None]
  - DYSPHONIA [None]
  - EATON-LAMBERT SYNDROME [None]
  - MUSCULAR WEAKNESS [None]
  - WEIGHT DECREASED [None]
